APPROVED DRUG PRODUCT: CLINDAMYCIN HYDROCHLORIDE
Active Ingredient: CLINDAMYCIN HYDROCHLORIDE
Strength: EQ 300MG BASE
Dosage Form/Route: CAPSULE;ORAL
Application: A065217 | Product #003 | TE Code: AB
Applicant: ZYDUS PHARMACEUTICALS USA INC
Approved: Jan 31, 2005 | RLD: No | RS: No | Type: RX